FAERS Safety Report 9282802 (Version 2)
Quarter: 2015Q1

REPORT INFORMATION
  Report Type: Spontaneous
  Country: US (occurrence: US)
  Receive Date: 20130510
  Receipt Date: 20150126
  Transmission Date: 20150721
  Serious: Yes (Hospitalization, Other)
  Sender: FDA-Public Use
  Company Number: US-BAYER-2013-058082

PATIENT
  Age: 21 Year
  Sex: Female
  Weight: 68.27 kg

DRUGS (8)
  1. LORTAB [Concomitant]
     Active Substance: ACETAMINOPHEN\HYDROCODONE BITARTRATE
  2. PROVENTIL [Concomitant]
     Active Substance: ALBUTEROL
  3. KEPPRA [Concomitant]
     Active Substance: LEVETIRACETAM
  4. MORPHINE [Concomitant]
     Active Substance: MORPHINE
  5. YASMIN [Suspect]
     Active Substance: DROSPIRENONE\ETHINYL ESTRADIOL
     Dosage: UNK
     Dates: start: 200612, end: 200702
  6. DARVOCET [Concomitant]
     Active Substance: ACETAMINOPHEN\PROPOXYPHENE HYDROCHLORIDE
  7. DILANTIN [Concomitant]
     Active Substance: PHENYTOIN
  8. PERCOCET [Concomitant]
     Active Substance: ACETAMINOPHEN\OXYCODONE HYDROCHLORIDE
     Indication: PAIN

REACTIONS (8)
  - Deep vein thrombosis [Recovered/Resolved]
  - Injury [Recovered/Resolved]
  - Thrombosis [None]
  - Peripheral swelling [Recovered/Resolved]
  - Abdominal pain [None]
  - Pain in extremity [Recovered/Resolved]
  - General physical health deterioration [Recovered/Resolved]
  - Deep vein thrombosis [Recovered/Resolved]

NARRATIVE: CASE EVENT DATE: 200702
